FAERS Safety Report 4344131-3 (Version None)
Quarter: 2004Q2

REPORT INFORMATION
  Report Type: 
  Country: None (occurrence: None)
  Receive Date: 20040422
  Receipt Date: 20031229
  Transmission Date: 20050107
  Serious: No
  Sender: FDA-Public Use
  Company Number: US-GLAXOSMITHKLINE-A0490793A

PATIENT
  Age: 12 Year
  Sex: Male

DRUGS (2)
  1. RETROVIR [Suspect]
     Indication: HIV INFECTION
     Route: 048
  2. AGENERASE [Concomitant]

REACTIONS (1)
  - GYNAECOMASTIA [None]
